FAERS Safety Report 16971313 (Version 1)
Quarter: 2019Q4

REPORT INFORMATION
  Report Type: Spontaneous
  Country: GB (occurrence: GB)
  Receive Date: 20191029
  Receipt Date: 20191029
  Transmission Date: 20200122
  Serious: Yes (Other)
  Sender: FDA-Public Use
  Company Number: GB-PFIZER INC-2019461731

PATIENT
  Age: 56 Year
  Sex: Male
  Weight: 128 kg

DRUGS (6)
  1. ATENOLOL. [Concomitant]
     Active Substance: ATENOLOL
     Dosage: 1 DF, 1X/DAY (TAKE IN MORNING)
     Dates: start: 20160701
  2. FOLIC ACID. [Concomitant]
     Active Substance: FOLIC ACID
     Dosage: 1 DF, 1X/DAY (FOR 2 MONTHS)
     Dates: start: 20190715, end: 20190909
  3. FENBID [Concomitant]
     Active Substance: IBUPROFEN
     Dosage: 3 DF, 1X/DAY
     Dates: start: 20190711, end: 20190808
  4. IRBESARTAN. [Concomitant]
     Active Substance: IRBESARTAN
     Dosage: 1 DF, 1X/DAY (TAKE IN MORNING)
     Dates: start: 20160701, end: 20190802
  5. BENDROFLUMETHIAZIDE [Concomitant]
     Active Substance: BENDROFLUMETHIAZIDE
     Dosage: 1 DF, 1X/DAY (TAKE IN MORNING)
     Dates: start: 20190802
  6. AMLODIPINE BESILATE [Suspect]
     Active Substance: AMLODIPINE BESYLATE
     Dosage: 5 MG, 1X/DAY
     Dates: start: 20190711

REACTIONS (3)
  - Blister [Unknown]
  - Joint swelling [Recovering/Resolving]
  - Peripheral swelling [Unknown]
